FAERS Safety Report 17331890 (Version 2)
Quarter: 2022Q4

REPORT INFORMATION
  Report Type: Spontaneous
  Country: US (occurrence: US)
  Receive Date: 20200128
  Receipt Date: 20221031
  Transmission Date: 20230113
  Serious: Yes (Other)
  Sender: FDA-Public Use
  Company Number: US-UCBSA-2020003860

PATIENT
  Age: 1 Year
  Sex: Female

DRUGS (7)
  1. LEVETIRACETAM [Suspect]
     Active Substance: LEVETIRACETAM
     Indication: Epilepsy
     Dosage: UNK
  2. LACOSAMIDE [Suspect]
     Active Substance: LACOSAMIDE
     Indication: Epilepsy
     Dosage: UNK
  3. OXCARBAZEPINE [Concomitant]
     Active Substance: OXCARBAZEPINE
     Indication: Epilepsy
     Dosage: UNK
  4. CLOBAZAM [Concomitant]
     Active Substance: CLOBAZAM
     Indication: Epilepsy
     Dosage: UNK
  5. TOPIRAMATE [Concomitant]
     Active Substance: TOPIRAMATE
     Indication: Epilepsy
     Dosage: UNK
  6. PREDNISOLONE [Concomitant]
     Active Substance: PREDNISOLONE
     Indication: Infantile spasms
     Dosage: UNK
  7. VIGABATRIN [Concomitant]
     Active Substance: VIGABATRIN
     Indication: Infantile spasms
     Dosage: UNK

REACTIONS (1)
  - Seizure [Unknown]
